FAERS Safety Report 5231174-0 (Version None)
Quarter: 2007Q1

REPORT INFORMATION
  Report Type: 
  Country: None (occurrence: None)
  Receive Date: 20070206
  Receipt Date: 20070124
  Transmission Date: 20070707
  Serious: Yes (Other)
  Sender: FDA-Public Use
  Company Number: US-ELI_LILLY_AND_COMPANY-US200701004942

PATIENT
  Age: 16 Year
  Sex: Female

DRUGS (1)
  1. PROZAC [Suspect]
     Indication: STRESS
     Route: 048

REACTIONS (2)
  - AGGRESSION [None]
  - MENTAL DISORDER [None]
